FAERS Safety Report 8012617-6 (Version None)
Quarter: 2011Q4

REPORT INFORMATION
  Report Type: 
  Country: None (occurrence: None)
  Receive Date: 20111229
  Receipt Date: 20111219
  Transmission Date: 20120403
  Serious: Yes (Hospitalization)
  Sender: FDA-Public Use
  Company Number: US-BAYER-2011-076854

PATIENT
  Age: 39 Year
  Sex: Female
  Weight: 55.329 kg

DRUGS (7)
  1. PEPCID [Concomitant]
  2. DEXAMETHASONE [Concomitant]
  3. LOVAZA [Concomitant]
     Indication: BLOOD TRIGLYCERIDES INCREASED
     Dosage: 1 G, QD
     Route: 048
     Dates: start: 20090106, end: 20091201
  4. YAZ [Suspect]
     Indication: CONTRACEPTION
     Dosage: UNK
     Dates: start: 20061201, end: 20091001
  5. ZEGERID [Concomitant]
     Indication: DYSPEPSIA
     Dosage: UNK
     Route: 048
     Dates: start: 20090401, end: 20090601
  6. YAZ [Suspect]
     Indication: PREMENSTRUAL SYNDROME
  7. B COMPLEX WITH B12 FOLIC [Concomitant]

REACTIONS (13)
  - CEREBROVASCULAR ACCIDENT [None]
  - INJURY [None]
  - HEMIPLEGIA [None]
  - EMOTIONAL DISTRESS [None]
  - ANXIETY [None]
  - DIZZINESS [None]
  - HEADACHE [None]
  - VISUAL FIELD DEFECT [None]
  - SPEECH DISORDER [None]
  - PAIN [None]
  - PSYCHOLOGICAL TRAUMA [None]
  - FEAR [None]
  - MEMORY IMPAIRMENT [None]
